FAERS Safety Report 9783211 (Version 1)
Quarter: 2013Q4

REPORT INFORMATION
  Report Type: Spontaneous
  Country: US (occurrence: None)
  Receive Date: 20131223
  Receipt Date: 20131223
  Transmission Date: 20140711
  Serious: No
  Sender: FDA-Public Use
  Company Number: EUS-2012-00105

PATIENT
  Age: 17 Year
  Sex: Female

DRUGS (7)
  1. ERWINASE [Suspect]
     Indication: ACUTE LYMPHOCYTIC LEUKAEMIA
     Dosage: 48 DOSES (X2/96)
     Route: 030
     Dates: start: 20060906, end: 20070525
  2. METHOTREXATE [Concomitant]
  3. VINCRISTINE (VINCRISTINE) [Concomitant]
  4. DEXAMETHASONE (DEXAMETHASONE) [Concomitant]
  5. CYTOXAN (CYCLOPHOSPHAMIDE) [Concomitant]
  6. ARA-C (CYTARABINE) [Concomitant]
  7. (MERCAPTOPURINE ( (MERCAPTOPURINE) [Concomitant]

REACTIONS (1)
  - Hypoglycaemia [None]
